FAERS Safety Report 8871429 (Version 1)
Quarter: 2012Q4

REPORT INFORMATION
  Report Type: Spontaneous
  Country: US (occurrence: None)
  Receive Date: 20121026
  Receipt Date: 20121026
  Transmission Date: 20130627
  Serious: Yes (Disabling, Other)
  Sender: FDA-Public Use
  Company Number: None

PATIENT
  Age: 42 Year
  Sex: Female
  Weight: 139.26 kg

DRUGS (1)
  1. LISINOPRIL [Suspect]
     Indication: HYPERTENSION
     Dosage: 20 mg once per day po
     Route: 048
     Dates: start: 20120808, end: 20121024

REACTIONS (5)
  - Abdominal pain [None]
  - Fatigue [None]
  - Nausea [None]
  - Dizziness [None]
  - Arthralgia [None]
